FAERS Safety Report 25129728 (Version 1)
Quarter: 2025Q1

REPORT INFORMATION
  Report Type: Spontaneous
  Country: CN (occurrence: CN)
  Receive Date: 20250327
  Receipt Date: 20250327
  Transmission Date: 20250408
  Serious: Yes (Other)
  Sender: PFIZER
  Company Number: CN-PFIZER INC-PV202500034941

PATIENT
  Age: 74 Year
  Sex: Male
  Weight: 80 kg

DRUGS (2)
  1. METHOTREXATE SODIUM [Suspect]
     Active Substance: METHOTREXATE SODIUM
     Indication: Neoplasm malignant
     Dosage: 5 G, 1X/DAY
     Route: 041
     Dates: start: 20250313, end: 20250313
  2. DEXTROSE [Concomitant]
     Active Substance: DEXTROSE MONOHYDRATE
     Indication: Vehicle solution use
     Dosage: 500 ML, 1X/DAY
     Route: 041
     Dates: start: 20250313, end: 20250313

REACTIONS (3)
  - Pneumonia [Recovering/Resolving]
  - Mouth ulceration [Recovering/Resolving]
  - Pleural effusion [Recovering/Resolving]

NARRATIVE: CASE EVENT DATE: 20250318
